FAERS Safety Report 14089692 (Version 2)
Quarter: 2019Q3

REPORT INFORMATION
  Report Type: Spontaneous
  Country: US (occurrence: US)
  Receive Date: 20171014
  Receipt Date: 20190807
  Transmission Date: 20191004
  Serious: No
  Sender: FDA-Public Use
  Company Number: US-SA-2017SA168043

PATIENT
  Age: 51 Year
  Sex: Female

DRUGS (1)
  1. AUBAGIO [Suspect]
     Active Substance: TERIFLUNOMIDE
     Indication: MULTIPLE SCLEROSIS
     Dosage: 14 MG,QD
     Route: 048

REACTIONS (9)
  - Clumsiness [Recovered/Resolved]
  - Disturbance in attention [Unknown]
  - Mobility decreased [Not Recovered/Not Resolved]
  - Fatigue [Unknown]
  - Crying [Unknown]
  - Balance disorder [Recovered/Resolved]
  - Insomnia [Unknown]
  - Condition aggravated [Unknown]
  - Pain [Not Recovered/Not Resolved]

NARRATIVE: CASE EVENT DATE: 201707
